FAERS Safety Report 20624882 (Version 1)
Quarter: 2022Q1

REPORT INFORMATION
  Report Type: Spontaneous
  Country: US (occurrence: US)
  Receive Date: 20220323
  Receipt Date: 20220323
  Transmission Date: 20220424
  Serious: No
  Sender: FDA-Public Use
  Company Number: US-STRIDES ARCOLAB LIMITED-2022SP001954

PATIENT
  Age: 23 Year
  Sex: Female

DRUGS (11)
  1. PREDNISOLONE [Suspect]
     Active Substance: PREDNISOLONE
     Indication: Cheilitis
     Dosage: 40 MILLIGRAM
     Route: 048
  2. DOXYCYCLINE [Suspect]
     Active Substance: DOXYCYCLINE
     Indication: Cheilitis
     Dosage: 100 MILLIGRAM, BID
     Route: 048
  3. TACROLIMUS [Suspect]
     Active Substance: TACROLIMUS
     Indication: Cheilitis
     Dosage: UNK
     Route: 065
  4. TACROLIMUS [Suspect]
     Active Substance: TACROLIMUS
     Dosage: UNK
     Route: 065
  5. CLOBETASOL [Suspect]
     Active Substance: CLOBETASOL
     Indication: Cheilitis
     Dosage: UNK (MOISTURIZING CREAM)
     Route: 065
  6. CLOBETASOL [Suspect]
     Active Substance: CLOBETASOL
     Dosage: UNK (OINTMENT)
     Route: 065
  7. CALCIPOTRIENE [Suspect]
     Active Substance: CALCIPOTRIENE
     Indication: Cheilitis
     Dosage: 0.005 PERCENT
     Route: 061
  8. GENTAMICIN [Suspect]
     Active Substance: GENTAMICIN
     Indication: Cheilitis
     Dosage: UNK
     Route: 061
  9. GENTAMICIN [Suspect]
     Active Substance: GENTAMICIN
     Dosage: UNK
     Route: 065
  10. PETROLEUM JELLY [Concomitant]
     Active Substance: PETROLATUM
     Indication: Cheilitis
     Dosage: UNK
     Route: 065
  11. PETROLEUM JELLY [Concomitant]
     Active Substance: PETROLATUM
     Dosage: UNK
     Route: 065

REACTIONS (3)
  - Drug ineffective [Unknown]
  - Therapy partial responder [Unknown]
  - Off label use [Unknown]
